FAERS Safety Report 13858034 (Version 1)
Quarter: 2017Q3

REPORT INFORMATION
  Report Type: Spontaneous
  Country: US (occurrence: US)
  Receive Date: 20170811
  Receipt Date: 20170811
  Transmission Date: 20171127
  Serious: No
  Sender: FDA-Public Use
  Company Number: US-B.I. PHARMACEUTICALS,INC./RIDGEFIELD-2017-BI-043725

PATIENT
  Age: 73 Year
  Sex: Male
  Weight: 71 kg

DRUGS (12)
  1. PRADAXA [Suspect]
     Active Substance: DABIGATRAN ETEXILATE MESYLATE
     Indication: ATRIAL FIBRILLATION
     Route: 048
     Dates: start: 201701
  2. ALLOPURINOL. [Concomitant]
     Active Substance: ALLOPURINOL
     Indication: BLOOD URIC ACID DECREASED
     Route: 048
     Dates: start: 20151118
  3. CLOPIDOGREL [Concomitant]
     Active Substance: CLOPIDOGREL BISULFATE
     Indication: CORONARY ARTERY DISEASE
     Route: 048
     Dates: start: 20160613, end: 20170719
  4. SPIRONOLACTONE. [Concomitant]
     Active Substance: SPIRONOLACTONE
     Indication: PROPHYLAXIS
     Dosage: 2X/DAY;  FORM STRENGTH: 50 MG
     Route: 048
     Dates: start: 20161129
  5. MAGNESIUM [Concomitant]
     Active Substance: MAGNESIUM
     Indication: PROPHYLAXIS
     Dosage: 2X/DAY;  FORM STRENGTH: 300 MG
     Route: 048
     Dates: start: 20170101
  6. ACETYLSALICYLIC ACID [Concomitant]
     Active Substance: ASPIRIN
     Indication: CORONARY ARTERY DISEASE
     Dosage: 1X/DAY;  FORM STRENGTH: 100 MG
     Route: 048
     Dates: start: 20160613, end: 20170719
  7. TAFAMIDIS MEGLUMINE;PLACEBO [Concomitant]
     Active Substance: TAFAMIDIS MEGLUMINE
     Indication: AMYLOIDOSIS
     Dosage: 1X/DAY;  FORM STRENGTH: 20MG OR 80MG DOUBLE BLIND
     Route: 048
     Dates: start: 20170704
  8. CAMELLIA SINENSIS EXTRACT (GREEN TEA EXTRACT) [Concomitant]
     Indication: AMYLOIDOSIS
     Dosage: 4X/DAILY;
     Route: 048
  9. POTASSIUM CHLORIDE. [Concomitant]
     Active Substance: POTASSIUM CHLORIDE
     Indication: PROPHYLAXIS
     Route: 048
     Dates: start: 20161129
  10. COLECALCIFEROL (DEKRISTOL) [Concomitant]
     Indication: VITAMIN D DEFICIENCY
     Dosage: EVERY 2 WEEKS;  FORM STRENGTH: 20000 IU
     Route: 048
     Dates: start: 20151122
  11. BISOPROLOL [Concomitant]
     Active Substance: BISOPROLOL
     Indication: HYPERTENSION
     Route: 048
     Dates: start: 20160616
  12. TORASEMIDE [Concomitant]
     Active Substance: TORSEMIDE
     Indication: PROPHYLAXIS
     Route: 048
     Dates: start: 201701

REACTIONS (2)
  - Off label use [Unknown]
  - Haemorrhage [Recovered/Resolved]

NARRATIVE: CASE EVENT DATE: 201701
